FAERS Safety Report 9519577 (Version 1)
Quarter: 2013Q3

REPORT INFORMATION
  Report Type: Spontaneous
  Country: GB (occurrence: GB)
  Receive Date: 20130912
  Receipt Date: 20130912
  Transmission Date: 20140515
  Serious: Yes (Other)
  Sender: FDA-Public Use
  Company Number: PHHY2013GB098743

PATIENT
  Age: 60 Year
  Sex: Male
  Weight: 129.72 kg

DRUGS (2)
  1. METHOTREXATE [Suspect]
     Indication: RHEUMATOID ARTHRITIS
     Dosage: 12.5 MG, QW
     Route: 048
     Dates: start: 20110101, end: 20130828
  2. METFORMIN [Concomitant]

REACTIONS (2)
  - Irritability [Unknown]
  - Depression [Unknown]
